FAERS Safety Report 21553093 (Version 2)
Quarter: 2024Q3

REPORT INFORMATION
  Report Type: Spontaneous
  Country: GB (occurrence: GB)
  Receive Date: 20221104
  Receipt Date: 20240720
  Transmission Date: 20241016
  Serious: No
  Sender: CELLTRION
  Company Number: GB-CELLTRION INC.-2022GB017929

PATIENT

DRUGS (1)
  1. INFLIXIMAB [Suspect]
     Active Substance: INFLIXIMAB
     Indication: Orbital myositis
     Dosage: UNK
     Route: 058
     Dates: start: 202211

REACTIONS (1)
  - Off label use [Unknown]
